FAERS Safety Report 9555285 (Version 2)
Quarter: 2013Q4

REPORT INFORMATION
  Report Type: Spontaneous
  Country: AU (occurrence: AU)
  Receive Date: 20130926
  Receipt Date: 20131007
  Transmission Date: 20140711
  Serious: Yes (Death)
  Sender: FDA-Public Use
  Company Number: AU-ELI_LILLY_AND_COMPANY-AU201309007898

PATIENT
  Sex: Female
  Weight: 100 kg

DRUGS (12)
  1. INSULIN HUMAN [Suspect]
     Dosage: UNK
     Dates: start: 20120612
  2. INSULIN HUMAN [Suspect]
     Dosage: 220 U, EACH MORNING
     Route: 058
  3. INSULIN HUMAN [Suspect]
     Dosage: 90 U, EACH EVENING
     Route: 058
  4. THYROXINE [Concomitant]
     Indication: HYPOTHYROIDISM
  5. INDERAL [Concomitant]
  6. LASIX                              /00032601/ [Concomitant]
  7. VITAMIN D                          /00107901/ [Concomitant]
  8. ALDACTONE                          /00006201/ [Concomitant]
  9. PARIET [Concomitant]
  10. NEURONTIN [Concomitant]
  11. VASTIN                             /00896701/ [Concomitant]
  12. PROTAPHANE [Concomitant]
     Dosage: 68 U, EACH MORNING
     Route: 058

REACTIONS (6)
  - Death [Fatal]
  - Skin hypertrophy [Unknown]
  - Malabsorption from injection site [Unknown]
  - Blood glucose increased [Unknown]
  - Unevaluable event [Unknown]
  - Hypoglycaemia [Unknown]
